FAERS Safety Report 13419433 (Version 1)
Quarter: 2017Q2

REPORT INFORMATION
  Report Type: Report from Study
  Country: US (occurrence: US)
  Receive Date: 20170407
  Receipt Date: 20170407
  Transmission Date: 20170830
  Serious: Yes (Hospitalization)
  Sender: FDA-Public Use
  Company Number: US-ROCHE-1541491

PATIENT
  Age: 47 Year
  Sex: Male
  Weight: 93.5 kg

DRUGS (14)
  1. VALGANCICLOVIR. [Suspect]
     Active Substance: VALGANCICLOVIR
     Indication: SYSTEMIC VIRAL INFECTION
     Route: 048
     Dates: start: 20120331, end: 20120628
  2. PERCOCET [Concomitant]
     Active Substance: ACETAMINOPHEN\OXYCODONE HYDROCHLORIDE
     Dosage: 1 TABLET
     Route: 065
     Dates: start: 20120329
  3. CALCIUM ACETATE. [Concomitant]
     Active Substance: CALCIUM ACETATE
     Route: 065
     Dates: start: 20120329
  4. COREG [Concomitant]
     Active Substance: CARVEDILOL
     Route: 065
     Dates: start: 20120327
  5. NYSTATIN. [Concomitant]
     Active Substance: NYSTATIN
     Route: 065
     Dates: start: 20120413
  6. LASIX [Concomitant]
     Active Substance: FUROSEMIDE
     Route: 065
     Dates: start: 20120414
  7. COLACE [Concomitant]
     Active Substance: DOCUSATE SODIUM
     Route: 065
     Dates: start: 20120328
  8. BUTAMIRATE CITRATE [Concomitant]
     Active Substance: BUTAMIRATE CITRATE
     Dosage: 1 TABLET
     Route: 065
     Dates: start: 20120414
  9. PREDNISONE. [Concomitant]
     Active Substance: PREDNISONE
     Route: 065
     Dates: start: 20120328
  10. REGLAN [Concomitant]
     Active Substance: METOCLOPRAMIDE HYDROCHLORIDE
     Route: 065
     Dates: start: 20120410
  11. BACTRIM [Concomitant]
     Active Substance: SULFAMETHOXAZOLE\TRIMETHOPRIM
     Route: 065
     Dates: start: 20120414
  12. TACROLIMUS. [Concomitant]
     Active Substance: TACROLIMUS
     Route: 065
     Dates: start: 20120410
  13. NOVOLOG [Concomitant]
     Active Substance: INSULIN ASPART
     Dosage: 70/30  12 UNITS
     Route: 065
     Dates: start: 20120328
  14. LANSOPRAZOL [Concomitant]
     Active Substance: LANSOPRAZOLE
     Route: 065
     Dates: start: 20120329

REACTIONS (2)
  - Diabetic foot [Recovered/Resolved with Sequelae]
  - Sinusitis [Recovered/Resolved]

NARRATIVE: CASE EVENT DATE: 20120618
